FAERS Safety Report 10076789 (Version 2)
Quarter: 2014Q2

REPORT INFORMATION
  Report Type: Spontaneous
  Country: DE (occurrence: DE)
  Receive Date: 20140414
  Receipt Date: 20140414
  Transmission Date: 20141212
  Serious: Yes (Life-Threatening)
  Sender: FDA-Public Use
  Company Number: DE-PFIZER INC-2014050383

PATIENT
  Age: 57 Year
  Sex: Female
  Weight: 65 kg

DRUGS (1)
  1. AZULFIDINE [Suspect]
     Indication: DIVERTICULITIS
     Dosage: 500 MG, 2 TABLETS
     Route: 048
     Dates: start: 20140207, end: 20140207

REACTIONS (5)
  - Abdominal pain upper [Recovered/Resolved]
  - Irritable bowel syndrome [Recovered/Resolved]
  - Hyperhidrosis [Recovered/Resolved]
  - Cardiovascular disorder [Recovered/Resolved]
  - Tremor [Recovered/Resolved]
